FAERS Safety Report 24348680 (Version 1)
Quarter: 2024Q3

REPORT INFORMATION
  Report Type: Spontaneous
  Country: FR (occurrence: FR)
  Receive Date: 20240923
  Receipt Date: 20240923
  Transmission Date: 20241016
  Serious: Yes (Other)
  Sender: GILEAD
  Company Number: FR-GILEAD-2024-0687429

PATIENT
  Sex: Female

DRUGS (3)
  1. LENACAPAVIR [Suspect]
     Active Substance: LENACAPAVIR
     Indication: HIV infection
     Dosage: UNK
     Route: 065
  2. LENACAPAVIR [Suspect]
     Active Substance: LENACAPAVIR
     Dosage: UNK
     Route: 065
     Dates: start: 20240910
  3. TRUVADA [Suspect]
     Active Substance: EMTRICITABINE\TENOFOVIR DISOPROXIL FUMARATE
     Indication: HIV infection
     Route: 065

REACTIONS (4)
  - Gastric ulcer [Unknown]
  - Helicobacter infection [Unknown]
  - Injection site nodule [Unknown]
  - Incorrect dose administered [Recovered/Resolved]

NARRATIVE: CASE EVENT DATE: 20240910
